FAERS Safety Report 24747889 (Version 1)
Quarter: 2024Q4

REPORT INFORMATION
  Report Type: Spontaneous
  Country: ES (occurrence: ES)
  Receive Date: 20241218
  Receipt Date: 20241218
  Transmission Date: 20250114
  Serious: Yes (Other)
  Sender: TEVA
  Company Number: None

PATIENT
  Age: 50 Year
  Sex: Male

DRUGS (1)
  1. EZETIMIBE [Suspect]
     Active Substance: EZETIMIBE
     Indication: Cardiovascular event prophylaxis
     Dosage: EZETIMIBE (7432A)
     Route: 048
     Dates: start: 20241023, end: 20241025

REACTIONS (1)
  - Urticarial dermatitis [Recovered/Resolved]

NARRATIVE: CASE EVENT DATE: 20241024
